FAERS Safety Report 9979182 (Version 1)
Quarter: 2014Q1

REPORT INFORMATION
  Report Type: Report from Study
  Country: US (occurrence: US)
  Receive Date: 20140306
  Receipt Date: 20140306
  Transmission Date: 20141002
  Serious: No
  Sender: FDA-Public Use
  Company Number: US-ABBVIE-13P-163-1173671-00

PATIENT
  Age: 24 Year
  Sex: Male

DRUGS (5)
  1. HUMIRA [Suspect]
     Indication: CROHN^S DISEASE
     Dates: start: 20131008, end: 20131008
  2. HUMIRA [Suspect]
     Dates: start: 20131022, end: 20131022
  3. HUMIRA [Suspect]
     Dates: start: 20131029, end: 20131119
  4. PREDNISONE [Concomitant]
     Indication: CROHN^S DISEASE
  5. PROMETHAZINE [Concomitant]
     Indication: ABDOMINAL PAIN

REACTIONS (6)
  - Skin discolouration [Not Recovered/Not Resolved]
  - Diarrhoea haemorrhagic [Not Recovered/Not Resolved]
  - Abdominal pain [Not Recovered/Not Resolved]
  - Drug ineffective [Not Recovered/Not Resolved]
  - Migraine [Not Recovered/Not Resolved]
  - Nausea [Not Recovered/Not Resolved]
